FAERS Safety Report 25651338 (Version 1)
Quarter: 2025Q3

REPORT INFORMATION
  Report Type: Spontaneous
  Country: EU (occurrence: EU)
  Receive Date: 20250806
  Receipt Date: 20250806
  Transmission Date: 20251021
  Serious: Yes (Hospitalization)
  Sender: ETHYPHARM
  Company Number: None

PATIENT
  Age: 30 Year
  Sex: Female

DRUGS (8)
  1. ALCOHOL [Suspect]
     Active Substance: ALCOHOL
     Indication: Alcohol use
     Route: 048
     Dates: start: 2000
  2. CANNABIS SATIVA SUBSP. INDICA TOP [Suspect]
     Active Substance: CANNABIS SATIVA SUBSP. INDICA TOP
     Indication: Drug abuse
     Route: 055
     Dates: start: 2001
  3. METHADONE HYDROCHLORIDE [Suspect]
     Active Substance: METHADONE HYDROCHLORIDE
     Indication: Product used for unknown indication
     Dates: start: 2013
  4. BUPRENORPHINE [Suspect]
     Active Substance: BUPRENORPHINE
     Indication: Product used for unknown indication
  5. HEROIN [Suspect]
     Active Substance: DIAMORPHINE
     Indication: Drug dependence
     Dates: start: 2006, end: 2013
  6. NICOTINE\TOBACCO LEAF [Suspect]
     Active Substance: NICOTINE\TOBACCO LEAF
     Indication: Tobacco user
     Route: 055
     Dates: start: 2002
  7. COCAINE [Suspect]
     Active Substance: COCAINE
     Indication: Drug abuse
     Route: 045
     Dates: start: 2005, end: 2014
  8. MIDOMAFETAMINE [Suspect]
     Active Substance: MIDOMAFETAMINE
     Indication: Drug abuse
     Route: 048
     Dates: start: 2015

REACTIONS (4)
  - Drug abuse [Not Recovered/Not Resolved]
  - Intentional product misuse [Not Recovered/Not Resolved]
  - Drug abuse [Not Recovered/Not Resolved]
  - Alcohol abuse [Recovering/Resolving]
